FAERS Safety Report 18235325 (Version 2)
Quarter: 2022Q1

REPORT INFORMATION
  Report Type: Spontaneous
  Country: DE (occurrence: DE)
  Receive Date: 20200905
  Receipt Date: 20220210
  Transmission Date: 20220424
  Serious: Yes (Life-Threatening, Hospitalization, Other)
  Sender: FDA-Public Use
  Company Number: DE-SA-2020SA171267

PATIENT
  Age: 48 Year
  Sex: Female
  Weight: 93 kg

DRUGS (5)
  1. LEVOTHYROXINE SODIUM [Suspect]
     Active Substance: LEVOTHYROXINE SODIUM
     Dosage: UNK,THERAPY START DATE: ASKU,THERAPY END DATE : ASKU
  2. VENLAFAXINE HYDROCHLORIDE [Suspect]
     Active Substance: VENLAFAXINE HYDROCHLORIDE
     Dosage: 300 MG,THERAPY END DATE : ASKU
     Route: 048
     Dates: start: 2009
  3. VENLAFAXINE HYDROCHLORIDE [Suspect]
     Active Substance: VENLAFAXINE HYDROCHLORIDE
     Dosage: UNK,THERAPY START DATE: ASKU,THERAPY END DATE : ASKU
     Route: 048
  4. PREGABALIN [Suspect]
     Active Substance: PREGABALIN
     Dosage: 100 MG, THERAPY START DATE: ASKU,THERAPY END DATE : ASKU
  5. PIPAMPERONE HYDROCHLORIDE [Suspect]
     Active Substance: PIPAMPERONE HYDROCHLORIDE
     Dosage: 48 MG,0-0-1-2,THERAPY START DATE: ASKU,THERAPY END DATE : ASKU

REACTIONS (9)
  - Pulmonary embolism [Recovering/Resolving]
  - Tachycardia [Recovering/Resolving]
  - Respiratory failure [Recovering/Resolving]
  - Electrocardiogram ST-T segment abnormal [Recovering/Resolving]
  - Deep vein thrombosis [Recovering/Resolving]
  - Presyncope [Recovering/Resolving]
  - Dyspnoea [Recovering/Resolving]
  - Pneumonia [Unknown]
  - Peripheral swelling [Recovering/Resolving]

NARRATIVE: CASE EVENT DATE: 20200511
